FAERS Safety Report 13517622 (Version 1)
Quarter: 2017Q2

REPORT INFORMATION
  Report Type: Spontaneous
  Country: FR (occurrence: FR)
  Receive Date: 20170505
  Receipt Date: 20170505
  Transmission Date: 20170830
  Serious: Yes (Hospitalization)
  Sender: FDA-Public Use
  Company Number: FR-PFIZER INC-2017189154

PATIENT
  Age: 57 Year
  Sex: Male

DRUGS (12)
  1. TRIFLUCAN [Interacting]
     Active Substance: FLUCONAZOLE
     Indication: INFLAMMATION
     Dosage: 1 DF, 1X/DAY
     Route: 048
     Dates: start: 20170407, end: 20170413
  2. INNOHEP [Concomitant]
     Active Substance: TINZAPARIN SODIUM
  3. LANSOPRAZOLE. [Concomitant]
     Active Substance: LANSOPRAZOLE
  4. ATORVASTATIN CALCIUM. [Suspect]
     Active Substance: ATORVASTATIN CALCIUM
     Dosage: 2 DF, 1X/DAY
     Route: 048
     Dates: end: 20170413
  5. PROGRAF [Interacting]
     Active Substance: TACROLIMUS\TACROLIMUS ANHYDROUS
     Indication: TRANSPLANT
     Dosage: 7 MG, DAILY
     Route: 048
     Dates: start: 201610, end: 20170413
  6. ATACAND [Interacting]
     Active Substance: CANDESARTAN CILEXETIL
     Dosage: 8 MG, 2X/DAY
     Route: 048
     Dates: end: 20170413
  7. CALCIUM/VITAMIN D /01204201/ [Concomitant]
     Active Substance: CALCIUM CARBONATE\ERGOCALCIFEROL
  8. PROPRANOLOL [Interacting]
     Active Substance: PROPRANOLOL HYDROCHLORIDE
     Dosage: 0.5 DF, 2X/DAY
     Route: 048
     Dates: end: 20170413
  9. SPECIAFOLDINE [Concomitant]
     Active Substance: FOLIC ACID
  10. CELLCEPT [Interacting]
     Active Substance: MYCOPHENOLATE MOFETIL\MYCOPHENOLATE MOFETIL HYDROCHLORIDE
     Indication: TRANSPLANT
     Dosage: 1 G, 2X/DAY
     Route: 048
     Dates: start: 201610, end: 20170413
  11. BACTRIM [Concomitant]
     Active Substance: SULFAMETHOXAZOLE\TRIMETHOPRIM
  12. ROVALCYTE [Concomitant]
     Active Substance: VALGANCICLOVIR HYDROCHLORIDE

REACTIONS (2)
  - Drug interaction [Recovered/Resolved]
  - Immunosuppressant drug level increased [Recovered/Resolved]

NARRATIVE: CASE EVENT DATE: 20170413
